FAERS Safety Report 8804629 (Version 1)
Quarter: 2012Q4

REPORT INFORMATION
  Report Type: Report from Study
  Country: BE (occurrence: BE)
  Receive Date: 20120924
  Receipt Date: 20120924
  Transmission Date: 20130627
  Serious: Yes (Hospitalization, Other)
  Sender: FDA-Public Use
  Company Number: BE-ABBOTT-12P-013-0964549-00

PATIENT
  Age: 64 Year
  Sex: Female

DRUGS (6)
  1. DUODOPA [Suspect]
     Indication: PARKINSON^S DISEASE
     Dosage: Intestinal,6.5ml AM dose,3.5mlcontinuous
     Dates: start: 20110513
  2. DUODOPA [Suspect]
     Dosage: Intestinal, bolus 1.5 ml TID
     Dates: start: 20110513
  3. EMCORETIC [Concomitant]
     Indication: HYPERTENSION
     Dosage: 10mg blso + 25mg HCTZ Once daily
     Route: 048
     Dates: start: 2010
  4. ZANTAC [Concomitant]
     Indication: GASTRITIS PROPHYLAXIS
     Route: 048
     Dates: start: 2011
  5. BRUFEN [Concomitant]
     Indication: ARTHRALGIA
     Dosage: As needed once
     Dates: start: 200904
  6. DICLOFENAC [Concomitant]
     Indication: ARTHRALGIA
     Dosage: As needed once
     Route: 048
     Dates: start: 200904

REACTIONS (2)
  - Stress [Recovered/Resolved]
  - Headache [Recovered/Resolved]
